FAERS Safety Report 9543395 (Version 1)
Quarter: 2013Q2

REPORT INFORMATION
  Report Type: Spontaneous
  Country: US (occurrence: None)
  Receive Date: 20130524
  Receipt Date: 20130524
  Transmission Date: 20140414
  Serious: Yes (Other)
  Sender: FDA-Public Use
  Company Number: PHEH2013US001907

PATIENT
  Age: 69 Year
  Sex: Female

DRUGS (2)
  1. GILENYA (FINGOLIMOD) CAPSULE, 0.5MG [Suspect]
     Indication: MULTIPLE SCLEROSIS
     Route: 048
     Dates: start: 20111205
  2. AMPYRA (FAMPRIDINE) [Concomitant]

REACTIONS (9)
  - Insomnia [None]
  - Gait disturbance [None]
  - Stress [None]
  - Abdominal discomfort [None]
  - Dysgraphia [None]
  - Fatigue [None]
  - Influenza [None]
  - Asthenia [None]
  - Cough [None]
